FAERS Safety Report 14578386 (Version 2)
Quarter: 2018Q4

REPORT INFORMATION
  Report Type: Spontaneous
  Country: DE (occurrence: DE)
  Receive Date: 20180227
  Receipt Date: 20181019
  Transmission Date: 20190204
  Serious: Yes (Other)
  Sender: FDA-Public Use
  Company Number: DE-ASTRAZENECA-2017SF13016

PATIENT
  Age: 23254 Day
  Sex: Female
  Weight: 52 kg

DRUGS (4)
  1. TAGRISSO [Suspect]
     Active Substance: OSIMERTINIB
     Route: 048
     Dates: start: 20171223, end: 20180216
  2. BISOPROLOL [Concomitant]
     Active Substance: BISOPROLOL
     Indication: HYPERTENSION
     Dosage: 5.0MG UNKNOWN
     Route: 048
     Dates: start: 2014
  3. TAGRISSO [Suspect]
     Active Substance: OSIMERTINIB
     Route: 048
     Dates: start: 20171030, end: 20171222
  4. AFATINIB [Concomitant]
     Active Substance: AFATINIB
     Dates: end: 201711

REACTIONS (10)
  - Fatigue [Recovering/Resolving]
  - Diarrhoea [Unknown]
  - Anxiety [Recovering/Resolving]
  - Radiation pneumonitis [Unknown]
  - Influenza [Unknown]
  - Liver disorder [Recovering/Resolving]
  - Interstitial lung disease [Unknown]
  - Depression [Recovering/Resolving]
  - Pleural effusion [Unknown]
  - Dyspnoea [Unknown]

NARRATIVE: CASE EVENT DATE: 201711
